FAERS Safety Report 8587114-X (Version None)
Quarter: 2012Q3

REPORT INFORMATION
  Report Type: 
  Country: None (occurrence: None)
  Receive Date: 20120810
  Receipt Date: 20120803
  Transmission Date: 20120928
  Serious: Yes (Other)
  Sender: FDA-Public Use
  Company Number: AU-ABBOTT-12P-008-0965316-00

PATIENT
  Age: 32 Year
  Sex: Female

DRUGS (2)
  1. VITAMIN TAB [Concomitant]
     Indication: PRODUCT USED FOR UNKNOWN INDICATION
  2. VALPROIC ACID [Suspect]
     Indication: EPILEPSY
     Dosage: GASTRO-RESISTANT TABLET, TWICE A DAY
     Route: 048

REACTIONS (6)
  - PANIC ATTACK [None]
  - DEPRESSION [None]
  - OEDEMA PERIPHERAL [None]
  - ANXIETY [None]
  - TREMOR [None]
  - RESTLESS LEGS SYNDROME [None]
